FAERS Safety Report 9452677 (Version 2)
Quarter: 2013Q3

REPORT INFORMATION
  Report Type: Report from Study
  Country: ES (occurrence: ES)
  Receive Date: 20130812
  Receipt Date: 20130816
  Transmission Date: 20140515
  Serious: Yes (Death, Hospitalization)
  Sender: FDA-Public Use
  Company Number: ES-SANOFI-AVENTIS-2013SA079066

PATIENT
  Age: 52 Year
  Sex: Male
  Weight: 168 kg

DRUGS (2)
  1. CABAZITAXEL [Suspect]
     Indication: COLORECTAL CANCER
     Route: 042
     Dates: start: 20130528, end: 20130618
  2. HIBOR [Concomitant]
     Indication: EMBOLISM
     Dates: start: 20130729, end: 201308

REACTIONS (1)
  - Pulmonary embolism [Fatal]
